FAERS Safety Report 13002379 (Version 1)
Quarter: 2016Q4

REPORT INFORMATION
  Report Type: Spontaneous
  Country: DE (occurrence: DE)
  Receive Date: 20161206
  Receipt Date: 20161206
  Transmission Date: 20170207
  Serious: Yes (Other)
  Sender: FDA-Public Use
  Company Number: DE-PFIZER INC-2016556726

PATIENT
  Age: 33 Year
  Sex: Female

DRUGS (6)
  1. GEMEPROST [Concomitant]
     Active Substance: GEMEPROST
     Dosage: 1 MG, UNK
     Route: 067
  2. PROSTAGLANDIN F2 ALPHA [Concomitant]
     Active Substance: DINOPROST
     Indication: ABORTION INDUCED
     Dosage: 10 UG, UNK,INJECTED INTO THE AMNIOTIC SAC
  3. ORNIPRESSIN [Concomitant]
     Dosage: UNK, (2.5 I.E.)
  4. PROSTAGLANDIN F2 ALPHA [Concomitant]
     Active Substance: DINOPROST
     Indication: BLEEDING TIME SHORTENED
     Dosage: 5 MG, UNK
     Route: 041
  5. SULPROSTONE [Concomitant]
     Active Substance: SULPROSTONE
     Dosage: 1.5 MG, UNK
     Route: 041
  6. METHOTREXATE SODIUM. [Suspect]
     Active Substance: METHOTREXATE SODIUM
     Indication: ABORTION
     Dosage: 20 MG, UNK

REACTIONS (2)
  - Haemorrhage [Unknown]
  - Product use issue [Unknown]
